FAERS Safety Report 8948526 (Version 1)
Quarter: 2012Q4

REPORT INFORMATION
  Report Type: 
  Country: AU (occurrence: AU)
  Receive Date: 20121206
  Receipt Date: 20121206
  Transmission Date: 20130627
  Serious: Yes (Hospitalization)
  Sender: FDA-Public Use
  Company Number: PHHY2012AU110393

PATIENT
  Sex: Male

DRUGS (1)
  1. CLOZARIL [Suspect]
     Dosage: 350 mg, UNK
     Route: 048
     Dates: start: 19950217

REACTIONS (4)
  - Cardiac disorder [Unknown]
  - Mental impairment [Unknown]
  - Malaise [Unknown]
  - Lower respiratory tract infection [Unknown]
